FAERS Safety Report 8849052 (Version 1)
Quarter: 2012Q4

REPORT INFORMATION
  Report Type: 
  Country: US (occurrence: US)
  Receive Date: 20121019
  Receipt Date: 20121019
  Transmission Date: 20130627
  Serious: Yes (Hospitalization, Other)
  Sender: FDA-Public Use
  Company Number: PHEH2012US020297

PATIENT
  Sex: Male

DRUGS (3)
  1. GLEEVEC [Suspect]
     Dosage: 400 mg, UNK
  2. VERAPAMIL [Concomitant]
  3. PLAVIX [Concomitant]

REACTIONS (1)
  - Cerebrovascular accident [Unknown]
